FAERS Safety Report 9624459 (Version 1)
Quarter: 2013Q4

REPORT INFORMATION
  Report Type: Spontaneous
  Country: US (occurrence: US)
  Receive Date: 20131015
  Receipt Date: 20131015
  Transmission Date: 20140711
  Serious: No
  Sender: FDA-Public Use
  Company Number: US-BAYER-2013-124605

PATIENT
  Age: 67 Year
  Sex: Male
  Weight: 113 kg

DRUGS (7)
  1. ALEVE CAPLET [Suspect]
     Indication: ANALGESIC THERAPY
     Dosage: 2 DF, ONCE
     Route: 048
     Dates: start: 20131008, end: 20131008
  2. OXYCONTIN [Concomitant]
  3. OXYCODONE [Concomitant]
  4. IBUPROFEN [Concomitant]
  5. VALIUM [Concomitant]
  6. DECADRON [Concomitant]
  7. PROTONIX [Concomitant]

REACTIONS (4)
  - Glossodynia [Recovered/Resolved]
  - Oesophageal pain [Recovered/Resolved]
  - Dyspepsia [Recovered/Resolved]
  - Feeling abnormal [Recovered/Resolved]
